FAERS Safety Report 6904619-5 (Version None)
Quarter: 2010Q3

REPORT INFORMATION
  Report Type: 
  Country: None (occurrence: None)
  Receive Date: 20100804
  Receipt Date: 20090618
  Transmission Date: 20110219
  Serious: No
  Sender: FDA-Public Use
  Company Number: US-PFIZER INC-2009230953

PATIENT
  Sex: Female
  Weight: 117.1 kg

DRUGS (6)
  1. LYRICA [Suspect]
     Indication: ARTHRALGIA
     Dosage: 200 MG, 3X/DAY
     Route: 048
     Dates: start: 20090610
  2. GLUCOPHAGE [Concomitant]
     Indication: DIABETES MELLITUS
     Dosage: UNK
     Route: 048
     Dates: start: 19990101
  3. MONTELUKAST SODIUM [Concomitant]
     Indication: ASTHMA
     Dosage: UNK
     Route: 048
     Dates: start: 19990101
  4. VALSARTAN [Concomitant]
     Dosage: UNK
     Route: 048
     Dates: start: 19990101
  5. OXYBUTYNIN [Concomitant]
     Dosage: UNK
     Route: 048
     Dates: start: 19990101
  6. CELEBREX [Concomitant]
     Indication: PAIN
     Dosage: UNK
     Route: 048

REACTIONS (1)
  - HYPOAESTHESIA [None]
